FAERS Safety Report 25022325 (Version 1)
Quarter: 2025Q1

REPORT INFORMATION
  Report Type: Spontaneous
  Country: US (occurrence: US)
  Receive Date: 20250228
  Receipt Date: 20250228
  Transmission Date: 20250409
  Serious: Yes (Other)
  Sender: BRISTOL-MYERS SQUIBB COMPANY
  Company Number: US-BRISTOL-MYERS SQUIBB COMPANY-2025-029079

PATIENT
  Age: 82 Year
  Sex: Female
  Weight: 63.7 kg

DRUGS (1)
  1. REVLIMID [Suspect]
     Active Substance: LENALIDOMIDE
     Indication: Monoclonal gammopathy
     Dosage: 3 WEEKS ON/1 WEEK OFF
     Route: 048

REACTIONS (5)
  - Diarrhoea [Unknown]
  - Dizziness [Unknown]
  - Product distribution issue [Unknown]
  - Therapy interrupted [Unknown]
  - Off label use [Unknown]
